FAERS Safety Report 8785855 (Version 4)
Quarter: 2012Q4

REPORT INFORMATION
  Report Type: Report from Study
  Country: CA (occurrence: CA)
  Receive Date: 20120914
  Receipt Date: 20121214
  Transmission Date: 20130627
  Serious: Yes (Hospitalization, Other)
  Sender: FDA-Public Use
  Company Number: CA-ABBOTT-12P-028-0978194-00

PATIENT
  Age: 79 Year
  Sex: Female

DRUGS (1)
  1. HUMIRA [Suspect]
     Indication: RHEUMATOID ARTHRITIS
     Route: 058
     Dates: start: 20110719

REACTIONS (7)
  - Fall [Unknown]
  - Upper limb fracture [Unknown]
  - Fall [Unknown]
  - Pelvic fracture [Unknown]
  - Wrist fracture [Unknown]
  - Fall [Unknown]
  - Decubitus ulcer [Not Recovered/Not Resolved]
